FAERS Safety Report 17751353 (Version 1)
Quarter: 2020Q2

REPORT INFORMATION
  Report Type: Spontaneous
  Country: US (occurrence: US)
  Receive Date: 20200506
  Receipt Date: 20200506
  Transmission Date: 20200714
  Serious: Yes (Death)
  Sender: FDA-Public Use
  Company Number: None

PATIENT
  Sex: Male

DRUGS (9)
  1. PANTOPRAZOLE [Concomitant]
     Active Substance: PANTOPRAZOLE
  2. SIROLIMUS. [Concomitant]
     Active Substance: SIROLIMUS
  3. SILDENAFIL. [Suspect]
     Active Substance: SILDENAFIL
     Indication: HEART TRANSPLANT
     Route: 048
     Dates: start: 20200106
  4. HYDROCO APAP [Concomitant]
  5. CITALOPRAM [Concomitant]
     Active Substance: CITALOPRAM HYDROBROMIDE
  6. FUROSEMIDE. [Concomitant]
     Active Substance: FUROSEMIDE
  7. METOLAZONE. [Concomitant]
     Active Substance: METOLAZONE
  8. CLONIDINE. [Concomitant]
     Active Substance: CLONIDINE
  9. VITAMIN B12 [Concomitant]
     Active Substance: CYANOCOBALAMIN

REACTIONS (1)
  - Death [None]
